FAERS Safety Report 21343283 (Version 1)
Quarter: 2022Q3

REPORT INFORMATION
  Report Type: Spontaneous
  Country: US (occurrence: None)
  Receive Date: 20220916
  Receipt Date: 20220916
  Transmission Date: 20221027
  Serious: Yes (unspecified)
  Sender: FDA-Public Use
  Company Number: None

PATIENT
  Age: 84 Year
  Sex: Male
  Weight: 103.5 kg

DRUGS (16)
  1. LAGEVRIO [Suspect]
     Active Substance: MOLNUPIRAVIR
     Indication: COVID-19 treatment
     Dosage: OTHER QUANTITY : 4 CAPSULE(S);?FREQUENCY : TWICE A DAY;?
     Route: 048
     Dates: start: 20220905, end: 20220906
  2. AZELASTINE [Suspect]
     Active Substance: AZELASTINE
  3. FINASTERIDE [Concomitant]
     Active Substance: FINASTERIDE
  4. DOXAZOSIN [Concomitant]
     Active Substance: DOXAZOSIN MESYLATE
  5. FUROSEMIDE [Concomitant]
  6. PANTOPRAZOLE [Concomitant]
     Active Substance: PANTOPRAZOLE
  7. LORATADINE [Concomitant]
     Active Substance: LORATADINE
  8. TRIAMTERENE AND HYDROCHLOROTHIAZIDE [Concomitant]
     Active Substance: HYDROCHLOROTHIAZIDE\TRIAMTERENE
  9. FAMOTIDINE [Suspect]
     Active Substance: FAMOTIDINE
  10. MELOXICAM [Concomitant]
     Active Substance: MELOXICAM
  11. POTASSIUM [Concomitant]
     Active Substance: POTASSIUM
  12. CLOPIDOGREL [Suspect]
     Active Substance: CLOPIDOGREL BISULFATE
  13. ALLOPURINOL [Concomitant]
     Active Substance: ALLOPURINOL
  14. ASPIRIN [Concomitant]
     Active Substance: ASPIRIN
  15. TYLENOL [Concomitant]
     Active Substance: ACETAMINOPHEN
  16. VITAMIN D [Concomitant]
     Active Substance: VITAMIN D NOS

REACTIONS (2)
  - Paraesthesia oral [None]
  - Lip swelling [None]

NARRATIVE: CASE EVENT DATE: 20220905
